FAERS Safety Report 9471680 (Version 1)
Quarter: 2013Q3

REPORT INFORMATION
  Report Type: Spontaneous
  Country: DE (occurrence: None)
  Receive Date: 20130819
  Receipt Date: 20130819
  Transmission Date: 20140515
  Serious: Yes (Other)
  Sender: FDA-Public Use
  Company Number: 1308-1029

PATIENT
  Sex: Female

DRUGS (1)
  1. EYLEA [Suspect]
     Dosage: 1 IN 2 M
     Dates: start: 20121211

REACTIONS (1)
  - Age-related macular degeneration [None]
